FAERS Safety Report 8001110-2 (Version None)
Quarter: 2011Q4

REPORT INFORMATION
  Report Type: 
  Country: None (occurrence: None)
  Receive Date: 20111222
  Receipt Date: 20111214
  Transmission Date: 20120403
  Serious: Yes (Other)
  Sender: FDA-Public Use
  Company Number: JP-PFIZER INC-2011307820

PATIENT
  Age: 57 Year
  Sex: Male

DRUGS (4)
  1. ZOSYN [Suspect]
     Indication: PNEUMONIA ASPIRATION
     Dosage: 13.5 G/DAY
  2. AMPICILLIN SODIUM AND SULBACTAM SODIUM [Suspect]
     Indication: PNEUMONIA ASPIRATION
     Dosage: 6 G/DAY
  3. TOBRACIN [Suspect]
     Indication: PNEUMONIA ASPIRATION
     Dosage: 270 MG/DAY
  4. ZOSYN [Suspect]
     Dosage: 18 G/DAY

REACTIONS (1)
  - VITAMIN K DEFICIENCY [None]
